FAERS Safety Report 23069263 (Version 3)
Quarter: 2023Q4

REPORT INFORMATION
  Report Type: Spontaneous
  Country: FR (occurrence: FR)
  Receive Date: 20231016
  Receipt Date: 20231023
  Transmission Date: 20240109
  Serious: No
  Sender: FDA-Public Use
  Company Number: FR-PFIZER INC-PV202300165874

PATIENT
  Age: 25 Year
  Sex: Male
  Weight: 61 kg

DRUGS (2)
  1. OXBRYTA [Suspect]
     Active Substance: VOXELOTOR
     Indication: Haemolytic anaemia
     Dosage: UNK
     Dates: start: 20230821
  2. OXBRYTA [Suspect]
     Active Substance: VOXELOTOR
     Dosage: UNK
     Dates: start: 20230913

REACTIONS (6)
  - Haemoglobin decreased [Unknown]
  - Reticulocyte count abnormal [Unknown]
  - Haematocrit decreased [Unknown]
  - Blood bilirubin increased [Unknown]
  - Aspartate aminotransferase increased [Unknown]
  - Alanine aminotransferase increased [Unknown]

NARRATIVE: CASE EVENT DATE: 20230913
